FAERS Safety Report 24971751 (Version 3)
Quarter: 2025Q2

REPORT INFORMATION
  Report Type: Spontaneous
  Country: CA (occurrence: CA)
  Receive Date: 20250214
  Receipt Date: 20250515
  Transmission Date: 20250716
  Serious: Yes (Other)
  Sender: PFIZER
  Company Number: CA-PFIZER INC-202500033889

PATIENT
  Age: 41 Year
  Sex: Female

DRUGS (1)
  1. CIBINQO [Suspect]
     Active Substance: ABROCITINIB
     Indication: Dermatitis atopic
     Dosage: 200 MG, 1X/DAY (STARTED ON SAMPLES)
     Route: 048
     Dates: start: 20241115, end: 202503

REACTIONS (2)
  - Anal fissure [Unknown]
  - Rosacea [Unknown]
